FAERS Safety Report 24531342 (Version 1)
Quarter: 2024Q4

REPORT INFORMATION
  Report Type: Spontaneous
  Country: US (occurrence: US)
  Receive Date: 20241022
  Receipt Date: 20241022
  Transmission Date: 20250115
  Serious: Yes (Other)
  Sender: NOVO NORDISK
  Company Number: US-NOVOPROD-1298957

PATIENT
  Age: 62 Year
  Sex: Male

DRUGS (2)
  1. TRESIBA [Suspect]
     Active Substance: INSULIN DEGLUDEC
     Dosage: SLIDING SCALE
     Route: 058
  2. TRESIBA [Suspect]
     Active Substance: INSULIN DEGLUDEC
     Indication: Type 2 diabetes mellitus
     Dosage: SLIDING SCALE
     Route: 058
     Dates: start: 2014

REACTIONS (2)
  - Blindness [Unknown]
  - Eye pain [Unknown]

NARRATIVE: CASE EVENT DATE: 20200101
